FAERS Safety Report 16468670 (Version 5)
Quarter: 2019Q4

REPORT INFORMATION
  Report Type: Spontaneous
  Country: US (occurrence: US)
  Receive Date: 20190624
  Receipt Date: 20191002
  Transmission Date: 20200122
  Serious: No
  Sender: FDA-Public Use
  Company Number: US-PFIZER INC-2019269110

PATIENT
  Age: 68 Year
  Sex: Female

DRUGS (2)
  1. CHANTIX [Suspect]
     Active Substance: VARENICLINE TARTRATE
     Dosage: CUTTING 1MG IN HALF
  2. CHANTIX [Suspect]
     Active Substance: VARENICLINE TARTRATE
     Dosage: 1 MG, UNK

REACTIONS (5)
  - Malaise [Unknown]
  - Intentional product misuse [Unknown]
  - Product dispensing error [Unknown]
  - Pain [Unknown]
  - Speech disorder [Unknown]
